FAERS Safety Report 9878215 (Version 2)
Quarter: 2014Q2

REPORT INFORMATION
  Report Type: Spontaneous
  Country: US (occurrence: US)
  Receive Date: 20140206
  Receipt Date: 20140417
  Transmission Date: 20141212
  Serious: Yes (Other)
  Sender: FDA-Public Use
  Company Number: US-BAYER-2014-017700

PATIENT
  Age: 51 Year
  Sex: Female
  Weight: 70.3 kg

DRUGS (6)
  1. YAZ [Suspect]
  2. YASMIN [Suspect]
  3. OCELLA [Suspect]
  4. GIANVI [Suspect]
  5. SYNTHROID [Concomitant]
     Dosage: 100 ?G, UNK
  6. PROZAC [Concomitant]
     Dosage: 10 MG, UNK

REACTIONS (1)
  - Deep vein thrombosis [None]
